FAERS Safety Report 9038443 (Version 10)
Quarter: 2013Q3

REPORT INFORMATION
  Report Type: Report from Study
  Country: CA (occurrence: CA)
  Receive Date: 20130129
  Receipt Date: 20130729
  Transmission Date: 20140515
  Serious: Yes (Other)
  Sender: FDA-Public Use
  Company Number: CA-ROCHE-1173961

PATIENT
  Age: 55 Year
  Sex: Male
  Weight: 81.3 kg

DRUGS (5)
  1. ACTEMRA [Suspect]
     Indication: CASTLEMAN^S DISEASE
     Route: 042
     Dates: start: 20121012
  2. ACTEMRA [Suspect]
     Route: 042
     Dates: start: 20130506
  3. FUROSEMIDE [Concomitant]
  4. THALIDOMIDE [Concomitant]
  5. SPIRONOLACTONE [Concomitant]

REACTIONS (7)
  - Abdominal cavity drainage [Recovering/Resolving]
  - Weight fluctuation [Not Recovered/Not Resolved]
  - Heart rate decreased [Unknown]
  - Muscle spasms [Recovered/Resolved]
  - Muscle spasms [Not Recovered/Not Resolved]
  - Muscle spasms [Not Recovered/Not Resolved]
  - Muscle spasms [Not Recovered/Not Resolved]
